FAERS Safety Report 10594282 (Version 1)
Quarter: 2014Q4

REPORT INFORMATION
  Report Type: Spontaneous
  Country: US (occurrence: US)
  Receive Date: 20141119
  Receipt Date: 20141119
  Transmission Date: 20150529
  Serious: Yes (Hospitalization)
  Sender: FDA-Public Use
  Company Number: US-BAXTER-2014BAX068389

PATIENT
  Sex: Male

DRUGS (1)
  1. 0.45% SODIUM CHLORIDE INJECTION IN PLASTIC CONTAINER (PL 146?) [Suspect]
     Active Substance: SODIUM CHLORIDE
     Indication: HAEMODIALYSIS
     Route: 010

REACTIONS (3)
  - Diverticulitis [Recovering/Resolving]
  - Gastric haemorrhage [Recovering/Resolving]
  - Syncope [Recovering/Resolving]

NARRATIVE: CASE EVENT DATE: 201410
